FAERS Safety Report 23289948 (Version 1)
Quarter: 2023Q4

REPORT INFORMATION
  Report Type: Spontaneous
  Country: IT (occurrence: IT)
  Receive Date: 20231212
  Receipt Date: 20231212
  Transmission Date: 20240110
  Serious: Yes (Other)
  Sender: FDA-Public Use
  Company Number: IT-Korea IPSEN-2023-27118

PATIENT
  Age: 59 Year
  Sex: Male

DRUGS (9)
  1. NIVOLUMAB [Suspect]
     Active Substance: NIVOLUMAB
     Indication: Clear cell renal cell carcinoma
     Dosage: 240 MG Q 14
     Dates: start: 202305
  2. NIVOLUMAB [Suspect]
     Active Substance: NIVOLUMAB
     Dosage: 240 MG Q 14
  3. CABOMETYX [Suspect]
     Active Substance: CABOZANTINIB S-MALATE
     Indication: Clear cell renal cell carcinoma
     Dosage: 40 MG
     Route: 048
     Dates: start: 202305
  4. CABOMETYX [Suspect]
     Active Substance: CABOZANTINIB S-MALATE
     Dosage: 40 MG
     Route: 048
  5. BISOPROLOL [Concomitant]
     Active Substance: BISOPROLOL\BISOPROLOL FUMARATE
     Indication: Product used for unknown indication
  6. ZOFENOPRIL [Concomitant]
     Active Substance: ZOFENOPRIL
     Indication: Product used for unknown indication
  7. FOLIC ACID [Concomitant]
     Active Substance: FOLIC ACID
     Indication: Product used for unknown indication
  8. EZETIMIBE\ROSUVASTATIN [Concomitant]
     Active Substance: EZETIMIBE\ROSUVASTATIN
     Indication: Product used for unknown indication
  9. ASPIRIN\CLOPIDOGREL [Concomitant]
     Active Substance: ASPIRIN\CLOPIDOGREL

REACTIONS (2)
  - Erythema [Recovering/Resolving]
  - Photosensitivity reaction [Recovering/Resolving]

NARRATIVE: CASE EVENT DATE: 20230701
